FAERS Safety Report 8213347-8 (Version None)
Quarter: 2012Q1

REPORT INFORMATION
  Report Type: 
  Country: None (occurrence: None)
  Receive Date: 20120315
  Receipt Date: 20120309
  Transmission Date: 20120608
  Serious: No
  Sender: FDA-Public Use
  Company Number: US-PFIZER INC-2012064492

PATIENT

DRUGS (7)
  1. SPIRIVA [Suspect]
     Dosage: UNK
  2. LITHIUM CARBONATE [Suspect]
     Dosage: UNK
  3. SULFUR [Suspect]
     Dosage: UNK
  4. GEODON [Suspect]
     Dosage: UNK
  5. TRILEPTAL [Suspect]
     Dosage: UNK
  6. BACLOFEN [Suspect]
     Dosage: UNK
  7. NAVANE [Suspect]
     Dosage: UNK

REACTIONS (1)
  - DRUG HYPERSENSITIVITY [None]
